FAERS Safety Report 22289979 (Version 5)
Quarter: 2023Q4

REPORT INFORMATION
  Report Type: Report from Study
  Country: BR (occurrence: None)
  Receive Date: 20230505
  Receipt Date: 20231205
  Transmission Date: 20240110
  Serious: Yes (Hospitalization)
  Sender: FDA-Public Use
  Company Number: BR-ROCHE-3340443

PATIENT
  Age: 42 Year
  Sex: Male
  Weight: 75.4 kg

DRUGS (37)
  1. POLATUZUMAB VEDOTIN [Suspect]
     Active Substance: POLATUZUMAB VEDOTIN
     Indication: Diffuse large B-cell lymphoma
     Dosage: 1.8 MG/KG FOR A MAXIMUM DOSE OF 240 MG/CYCLE IV ON DAY 1 OF EACH 21-DAY CYCLE FOR UP TO 8 CYCLES.?ON
     Route: 042
     Dates: start: 20230412
  2. RITUXIMAB [Suspect]
     Active Substance: RITUXIMAB
     Indication: Diffuse large B-cell lymphoma
     Dosage: 375 MG/M2 IV ON DAY 1 OF EACH 21-DAY CYCLE FOR UP TO 8 CYCLES.?ON 12/APR/2023 MOST RECENT DOSE RITUX
     Route: 041
     Dates: start: 20230412
  3. GEMCITABINE [Suspect]
     Active Substance: GEMCITABINE
     Indication: Diffuse large B-cell lymphoma
     Dosage: 1000 MG/M2 IV ON DAY 2 OF EACH 21-DAY CYCLE FOR UP TO 8 CYCLES.?ON 13/APR/2023 MOST RECENT DOSE GEMC
     Route: 042
     Dates: start: 20230413
  4. OXALIPLATIN [Suspect]
     Active Substance: OXALIPLATIN
     Indication: Diffuse large B-cell lymphoma
     Dosage: 100 MG/M2 IV ON DAY 2 OF EACH 21-DAY CYCLE FOR UP TO 8 CYCLE.?ON 13/APR/2023 MOST RECENT DOSE OXALIP
     Route: 042
     Dates: start: 20230413
  5. ESOMEPRAZOLE [Concomitant]
     Active Substance: ESOMEPRAZOLE
     Indication: Gastritis
     Route: 048
  6. ACYCLOVIR [Concomitant]
     Active Substance: ACYCLOVIR
     Route: 048
  7. BACTRIM [Concomitant]
     Active Substance: SULFAMETHOXAZOLE\TRIMETHOPRIM
     Route: 048
  8. ESCITALOPRAM [Concomitant]
     Active Substance: ESCITALOPRAM OXALATE
     Indication: Anxiety
     Route: 048
  9. QUETIAPINE [Concomitant]
     Active Substance: QUETIAPINE
     Indication: Anxiety
     Route: 048
     Dates: start: 20230222
  10. DIPYRONE [Concomitant]
     Active Substance: DIPYRONE
     Indication: Cancer pain
     Route: 048
  11. DIPYRONE [Concomitant]
     Active Substance: DIPYRONE
     Route: 042
     Dates: start: 20230412, end: 20230412
  12. TRAMADOL [Concomitant]
     Active Substance: TRAMADOL\TRAMADOL HYDROCHLORIDE
     Indication: Cancer pain
     Route: 048
     Dates: start: 20230323
  13. TRAMADOL [Concomitant]
     Active Substance: TRAMADOL\TRAMADOL HYDROCHLORIDE
     Route: 042
     Dates: start: 20230412, end: 20230412
  14. MORPHINE [Concomitant]
     Active Substance: MORPHINE
     Indication: Cancer pain
     Route: 042
     Dates: start: 20230412, end: 20230412
  15. DEXCHLORPHENIRAMINE [Concomitant]
     Active Substance: DEXCHLORPHENIRAMINE
     Indication: Influenza
     Route: 048
     Dates: start: 20230430
  16. TENOXICAM [Concomitant]
     Active Substance: TENOXICAM
     Indication: Influenza
     Route: 042
     Dates: start: 20230430, end: 20230430
  17. OSELTAMIVIR [Concomitant]
     Active Substance: OSELTAMIVIR
     Indication: Influenza
     Route: 048
     Dates: start: 20230502
  18. ALLOPURINOL [Concomitant]
     Active Substance: ALLOPURINOL
     Route: 048
     Dates: start: 20230409, end: 20230427
  19. ALLOPURINOL [Concomitant]
     Active Substance: ALLOPURINOL
     Route: 048
     Dates: start: 20230428
  20. ALLOPURINOL [Concomitant]
     Active Substance: ALLOPURINOL
     Route: 048
     Dates: start: 20230515
  21. ALTEPLASE [Concomitant]
     Active Substance: ALTEPLASE
     Indication: Device occlusion
     Dates: start: 20230501, end: 20230501
  22. CIPROFLOXACIN [Concomitant]
     Active Substance: CIPROFLOXACIN
     Indication: Gastrointestinal infection
     Route: 048
     Dates: start: 20230415, end: 20230423
  23. LINEZOLID [Concomitant]
     Active Substance: LINEZOLID
     Indication: Gastrointestinal infection
     Dates: start: 20230508
  24. MEROPENEM [Concomitant]
     Active Substance: MEROPENEM
     Indication: Gastrointestinal infection
     Route: 042
     Dates: start: 20230503, end: 20230510
  25. METHADONE [Concomitant]
     Active Substance: METHADONE HYDROCHLORIDE
     Route: 048
     Dates: start: 20230428, end: 20230510
  26. FILGRASTIM [Concomitant]
     Active Substance: FILGRASTIM
     Route: 058
     Dates: start: 20230416, end: 20230420
  27. FILGRASTIM [Concomitant]
     Active Substance: FILGRASTIM
     Route: 058
     Dates: start: 20230630, end: 20230704
  28. ANIDULAFUNGIN [Concomitant]
     Active Substance: ANIDULAFUNGIN
     Route: 042
     Dates: start: 20230505, end: 20230515
  29. FOSAPREPITANT [Concomitant]
     Active Substance: FOSAPREPITANT
     Route: 042
     Dates: start: 20230508, end: 20230508
  30. HYDROCORTISONE [Concomitant]
     Active Substance: HYDROCORTISONE
     Route: 042
     Dates: start: 20230505, end: 20230506
  31. HYDROCORTISONE [Concomitant]
     Active Substance: HYDROCORTISONE
     Route: 042
     Dates: start: 20230507, end: 20230510
  32. METOCLOPRAMIDE [Concomitant]
     Active Substance: METOCLOPRAMIDE
     Route: 048
     Dates: start: 20230503, end: 20230506
  33. OMEPRAZOLE [Concomitant]
     Active Substance: OMEPRAZOLE
     Route: 042
     Dates: start: 20230504, end: 20230515
  34. VANCOMYCIN [Concomitant]
     Active Substance: VANCOMYCIN
     Route: 042
     Dates: start: 20230505, end: 20230508
  35. ACETAMINOPHEN [Concomitant]
     Active Substance: ACETAMINOPHEN
     Route: 048
     Dates: start: 20230503, end: 20230515
  36. CEFUROXIME [Concomitant]
     Active Substance: CEFUROXIME
     Indication: Sinusitis
     Route: 048
     Dates: start: 20230921, end: 20230929
  37. BUDESONIDE [Concomitant]
     Active Substance: BUDESONIDE
     Indication: Sinusitis
     Dates: start: 20230923, end: 20230929

REACTIONS (1)
  - Tumour fistulisation [Recovered/Resolved]

NARRATIVE: CASE EVENT DATE: 20230425
